FAERS Safety Report 15429982 (Version 3)
Quarter: 2019Q1

REPORT INFORMATION
  Report Type: Spontaneous
  Country: US (occurrence: US)
  Receive Date: 20180926
  Receipt Date: 20190211
  Transmission Date: 20190417
  Serious: Yes (Hospitalization, Other)
  Sender: FDA-Public Use
  Company Number: US-PFIZER INC-2018381541

PATIENT
  Age: 67 Year
  Sex: Male

DRUGS (8)
  1. TOPEX AC [Concomitant]
     Indication: PSORIATIC ARTHROPATHY
     Dosage: 80 MG, UNK, (2 SHOTS THE FIRST WEEK, THEN ONE INJECTION EVERY 2 WEEKS)
  2. LYRICA [Suspect]
     Active Substance: PREGABALIN
     Dosage: 3 DF, UNK
  3. LYRICA [Suspect]
     Active Substance: PREGABALIN
     Dosage: UNK
  4. LYRICA [Suspect]
     Active Substance: PREGABALIN
     Dosage: 400 MG, DAILY
     Route: 048
  5. LYRICA [Suspect]
     Active Substance: PREGABALIN
     Dosage: 600 MG, DAILY
     Route: 048
  6. COSENTYX [Concomitant]
     Active Substance: SECUKINUMAB
     Indication: PSORIATIC ARTHROPATHY
     Dosage: 2 DF, MONTHLY [TAKES 2 SHOTS EVERY MONTH]
  7. LYRICA [Suspect]
     Active Substance: PREGABALIN
     Indication: NEUROPATHY PERIPHERAL
     Dosage: 1000 MG, DAILY (200MG, FIVE TIMES DAILY THREE CAPSULES EVERY MORNING AND TWO CAPSULES AT NIGHT)
     Route: 048
  8. LYRICA [Suspect]
     Active Substance: PREGABALIN
     Dosage: UNK, 3X/DAY (3 A DAY)

REACTIONS (6)
  - Prescribed overdose [Unknown]
  - Product use issue [Unknown]
  - Weight decreased [Unknown]
  - Intentional product misuse [Unknown]
  - Pneumonia [Unknown]
  - Feeling abnormal [Unknown]

NARRATIVE: CASE EVENT DATE: 201803
